FAERS Safety Report 4835309-0 (Version None)
Quarter: 2005Q4

REPORT INFORMATION
  Report Type: 
  Country: None (occurrence: None)
  Receive Date: 20051114
  Receipt Date: 20051031
  Transmission Date: 20060501
  Serious: Yes (Hospitalization)
  Sender: FDA-Public Use
  Company Number: 2005002127

PATIENT
  Age: 75 Year
  Sex: Male
  Weight: 67 kg

DRUGS (8)
  1. ERLOTINIB HCL (TABLET) [Suspect]
     Indication: NON-SMALL CELL LUNG CANCER
     Dosage: 1500MG, ORAL
     Route: 048
     Dates: start: 20051022, end: 20051023
  2. PACLITAXEL [Suspect]
     Indication: NON-SMALL CELL LUNG CANCER
     Dosage: 200 MG/MM^2, INTRAVENOUS
     Route: 042
     Dates: start: 20051021
  3. CARBOPLATIN [Suspect]
     Indication: NON-SMALL CELL LUNG CANCER
     Dosage: 6 AUC, INTRAVENOUS
     Route: 042
     Dates: start: 20051021
  4. CETIRIZINE HCL [Concomitant]
  5. NICOTINE (NICODINE) [Concomitant]
  6. ALBUTEROL [Concomitant]
  7. MEGESTROL ACETATE [Concomitant]
  8. DOCUSATE SODIUM (DOCUSATE SODIUM) [Concomitant]

REACTIONS (3)
  - HYPONATRAEMIA [None]
  - ORTHOSTATIC HYPOTENSION [None]
  - SYNCOPE [None]
